FAERS Safety Report 10263100 (Version 2)
Quarter: 2014Q2

REPORT INFORMATION
  Report Type: Report from Study
  Country: US (occurrence: US)
  Receive Date: 20140626
  Receipt Date: 20140626
  Transmission Date: 20141212
  Serious: Yes (Death)
  Sender: FDA-Public Use
  Company Number: US-MYLANLABS-2014S1001330

PATIENT
  Age: 63 Year
  Sex: Female

DRUGS (13)
  1. CLOZAPINE TABLETS [Suspect]
     Indication: BIPOLAR DISORDER
     Route: 048
     Dates: start: 20130322
  2. CLOZAPINE TABLETS [Suspect]
     Indication: BIPOLAR DISORDER
     Dosage: DOSE UNIT:25
     Route: 048
     Dates: start: 20130322, end: 20131208
  3. DEPAKOTE [Concomitant]
  4. HUMALOG [Concomitant]
  5. ZOLOFT [Concomitant]
  6. SYNTHROID [Concomitant]
  7. LEVEMIR [Concomitant]
  8. NEURONTIN [Concomitant]
  9. DUONEB [Concomitant]
  10. MEROPENEM [Concomitant]
  11. CARDIZEM [Concomitant]
  12. LOPRESSOR [Concomitant]
  13. VITAMIN D [Concomitant]

REACTIONS (1)
  - Cardiac arrest [Fatal]
